FAERS Safety Report 4689272-6 (Version None)
Quarter: 2005Q2

REPORT INFORMATION
  Report Type: 
  Country: None (occurrence: None)
  Receive Date: 20050613
  Receipt Date: 20050311
  Transmission Date: 20051028
  Serious: Yes (Death)
  Sender: FDA-Public Use
  Company Number: US-MERCK-0503USA02538

PATIENT
  Age: 60 Year
  Sex: Male
  Weight: 95 kg

DRUGS (5)
  1. VIOXX [Suspect]
     Indication: PAIN IN EXTREMITY
     Route: 048
     Dates: start: 20030801, end: 20031215
  2. VIOXX [Suspect]
     Route: 048
     Dates: start: 20020301
  3. VIOXX [Suspect]
     Indication: SHOULDER PAIN
     Route: 048
     Dates: start: 20030801, end: 20031215
  4. VIOXX [Suspect]
     Route: 048
     Dates: start: 20020301
  5. ASPIRIN [Concomitant]
     Route: 065

REACTIONS (14)
  - APNOEA [None]
  - CARDIAC ARREST [None]
  - CARDIO-RESPIRATORY ARREST [None]
  - COMA [None]
  - DEPRESSED LEVEL OF CONSCIOUSNESS [None]
  - DIARRHOEA [None]
  - FALL [None]
  - FATIGUE [None]
  - HYPERTENSION [None]
  - PAIN [None]
  - PULSE ABSENT [None]
  - PUPIL FIXED [None]
  - VENTRICULAR FIBRILLATION [None]
  - VOMITING [None]
